FAERS Safety Report 11441353 (Version 1)
Quarter: 2015Q3

REPORT INFORMATION
  Report Type: Spontaneous
  Country: US (occurrence: US)
  Receive Date: 20150821
  Receipt Date: 20150821
  Transmission Date: 20151125
  Serious: No
  Sender: FDA-Public Use
  Company Number: US-ELI_LILLY_AND_COMPANY-US200806001318

PATIENT
  Sex: Male

DRUGS (5)
  1. CYMBALTA [Interacting]
     Active Substance: DULOXETINE HYDROCHLORIDE
     Dosage: 60 MG, DAILY (1/D)
     Dates: start: 2008, end: 200803
  2. LEXAPRO [Concomitant]
     Active Substance: ESCITALOPRAM OXALATE
     Dosage: UNK, UNK
     Dates: start: 200803, end: 200803
  3. CYMBALTA [Interacting]
     Active Substance: DULOXETINE HYDROCHLORIDE
     Dosage: 60 MG, DAILY (1/D)
     Dates: start: 200712, end: 2008
  4. CYMBALTA [Suspect]
     Active Substance: DULOXETINE HYDROCHLORIDE
     Indication: BACK PAIN
     Dosage: 60 MG, DAILY (1/D)
     Dates: start: 2006
  5. CYMBALTA [Interacting]
     Active Substance: DULOXETINE HYDROCHLORIDE
     Dosage: 60 MG, DAILY (1/D)
     Dates: start: 20080525, end: 20080603

REACTIONS (8)
  - Arrhythmia [Unknown]
  - Depression [Unknown]
  - Palpitations [Unknown]
  - Muscle spasms [Unknown]
  - Vision blurred [Unknown]
  - Agitation [Unknown]
  - Paraesthesia [Unknown]
  - Drug interaction [Unknown]

NARRATIVE: CASE EVENT DATE: 2008
